FAERS Safety Report 24199307 (Version 2)
Quarter: 2024Q3

REPORT INFORMATION
  Report Type: Spontaneous
  Country: PT (occurrence: PT)
  Receive Date: 20240812
  Receipt Date: 20240822
  Transmission Date: 20241017
  Serious: Yes (Other)
  Sender: VIFOR
  Company Number: None

PATIENT
  Age: 58 Year
  Sex: Male
  Weight: 60 kg

DRUGS (7)
  1. VELTASSA [Suspect]
     Active Substance: PATIROMER
     Indication: Hyperkalaemia
     Dosage: 8.4 GRAM PACK
     Route: 048
     Dates: start: 20240603, end: 20240610
  2. VELTASSA [Suspect]
     Active Substance: PATIROMER
     Dosage: 8.4 GRAM PACK
     Route: 048
     Dates: start: 20240618, end: 20240623
  3. FEBUXOSTAT [Concomitant]
     Active Substance: FEBUXOSTAT
     Indication: Product used for unknown indication
  4. DAPAGLIFLOZIN [Concomitant]
     Active Substance: DAPAGLIFLOZIN
     Indication: Product used for unknown indication
  5. LERCANIDIPINE [Concomitant]
     Active Substance: LERCANIDIPINE
     Indication: Product used for unknown indication
  6. SINVASTATINA + EZETIMIBA [Concomitant]
     Indication: Product used for unknown indication
     Dosage: 40 + 10 MG
  7. ENALAPRIL [Concomitant]
     Active Substance: ENALAPRIL
     Indication: Product used for unknown indication

REACTIONS (4)
  - Oedema peripheral [Recovered/Resolved]
  - Gastrointestinal disorder [Recovered/Resolved]
  - Abdominal wall oedema [Recovered/Resolved]
  - Abdominal distension [Recovered/Resolved]

NARRATIVE: CASE EVENT DATE: 20240606
